FAERS Safety Report 5206054-7 (Version None)
Quarter: 2007Q1

REPORT INFORMATION
  Report Type: 
  Country: None (occurrence: None)
  Receive Date: 20070105
  Receipt Date: 20061228
  Transmission Date: 20070707
  Serious: Yes (Death, Hospitalization)
  Sender: FDA-Public Use
  Company Number: 430001N06MYS

PATIENT
  Age: 42 Year
  Sex: Female

DRUGS (3)
  1. NOVANTRONE [Suspect]
     Dosage: 10 MG, 1 IN 1 DAYS
     Dates: start: 20061107, end: 20061109
  2. GEMTUZUMAB OZOGAMICIN (GEMTUZUMAB OZOGAMICIN) [Suspect]
     Indication: ACUTE MYELOID LEUKAEMIA
     Dosage: 15 MG, 1 IN 1 DAYS, INTRAVENOUS
     Route: 042
     Dates: start: 20061109, end: 20061109
  3. CYTARABINE [Suspect]
     Dosage: 1 G, 2 IN 1 DAYS, INTRAVENOUS
     Route: 042
     Dates: start: 20061107, end: 20061110

REACTIONS (1)
  - NEUTROPENIA [None]
